FAERS Safety Report 7682053-0 (Version None)
Quarter: 2011Q3

REPORT INFORMATION
  Report Type: 
  Country: None (occurrence: None)
  Receive Date: 20110815
  Receipt Date: 20110810
  Transmission Date: 20111222
  Serious: Yes (Hospitalization, Other)
  Sender: FDA-Public Use
  Company Number: US-RB-027561-11

PATIENT
  Age: 77 Year
  Sex: Male

DRUGS (5)
  1. MUCINEX DM [Suspect]
     Dosage: PATIENT CHEWED ONE TABLET ON 17-JUL-2011
     Route: 048
  2. ASPIRIN [Concomitant]
  3. LEVETIRACETAM [Concomitant]
  4. XEPRA [Concomitant]
     Indication: CONVULSION
  5. LIPITOR [Concomitant]

REACTIONS (2)
  - CONVULSION [None]
  - WRONG TECHNIQUE IN DRUG USAGE PROCESS [None]
